FAERS Safety Report 9523891 (Version 1)
Quarter: 2013Q1

REPORT INFORMATION
  Report Type: Spontaneous
  Country: US (occurrence: None)
  Receive Date: 20130305
  Receipt Date: 20130305
  Transmission Date: 20140127
  Serious: Yes (Hospitalization, Other)
  Sender: FDA-Public Use
  Company Number: 163-21880-12012855

PATIENT
  Age: 80 Year
  Sex: Male
  Weight: 73.94 kg

DRUGS (13)
  1. REVLIMID [Suspect]
     Indication: 5Q MINUS SYNDROME
     Dosage: 10 MG, 1 IN 1 D, PO
     Route: 048
     Dates: start: 20110406
  2. REVLIMID [Suspect]
     Indication: CYTOGENETIC ANALYSIS ABNORMAL
     Dosage: 10 MG, 1 IN 1 D, PO
     Route: 048
     Dates: start: 20110406
  3. LUPRON (LEUPRORELIN ACETATE) (UNKNOWN) [Concomitant]
  4. CALCIUM (CALCIUM) (TABLETS) [Concomitant]
  5. FISH OIL (FISH OIL) (UNKNOWN) [Concomitant]
  6. LEVOTHROID (LEVOTHYROXINE SODIUM) (TABLETS) [Concomitant]
  7. MULTIVITAMINS (MULTIVITAMINS) (TABLETS) [Concomitant]
  8. PROZAC (FLUOXETINE HYDROCHLORIDE) (10 MILLIGRAM, TABLETS) [Concomitant]
  9. THEOPHYLLINE (THEOPHYLLINE) (SUSTAINED-RELEASE CAPSULES)? [Concomitant]
  10. VITAMIN B COMPLEX (B-KOMPLEX ^LECIVA^) (TABLETS) [Concomitant]
  11. VITAMIN C (ASCORBIC ACID) (TABLETS) [Concomitant]
  12. VITAMIN E (TOCOPHEROL) (CAPSULES) [Concomitant]
  13. ZANTAC (RANITIDINE HYDROCHLORIDE) (TABLETS) [Concomitant]

REACTIONS (5)
  - Transient ischaemic attack [None]
  - Lacunar infarction [None]
  - Drug intolerance [None]
  - Acute myeloid leukaemia [None]
  - Disease progression [None]
